FAERS Safety Report 13817183 (Version 2)
Quarter: 2017Q3

REPORT INFORMATION
  Report Type: Report from Study
  Country: BR (occurrence: BR)
  Receive Date: 20170731
  Receipt Date: 20170809
  Transmission Date: 20171127
  Serious: Yes (Death, Hospitalization)
  Sender: FDA-Public Use
  Company Number: PHHY2017BR111098

PATIENT
  Sex: Male

DRUGS (1)
  1. EXELON PATCH [Suspect]
     Active Substance: RIVASTIGMINE
     Indication: PARKINSON^S DISEASE
     Dosage: 4.6 MG, QD (PATCH 5 CM2)
     Route: 062
     Dates: end: 20170716

REACTIONS (6)
  - Cerebral haemorrhage [Unknown]
  - Haematoma [Unknown]
  - Head injury [Unknown]
  - Death [Fatal]
  - Syncope [Unknown]
  - Fall [Unknown]
